FAERS Safety Report 9561385 (Version 1)
Quarter: 2013Q3

REPORT INFORMATION
  Report Type: Spontaneous
  Country: US (occurrence: None)
  Receive Date: 20130821
  Receipt Date: 20130821
  Transmission Date: 20140515
  Serious: Yes (Other)
  Sender: FDA-Public Use
  Company Number: 1000045990

PATIENT
  Age: 68 Year
  Sex: Male

DRUGS (2)
  1. TUDORZA PRESSAIR [Suspect]
     Indication: CHRONIC OBSTRUCTIVE PULMONARY DISEASE
     Route: 055
     Dates: start: 201305
  2. AMLODIPINE (AMLODIPINE) [Concomitant]

REACTIONS (1)
  - Sinusitis [None]
